FAERS Safety Report 8956128 (Version 5)
Quarter: 2015Q3

REPORT INFORMATION
  Report Type: Spontaneous
  Country: JP (occurrence: JP)
  Receive Date: 20121210
  Receipt Date: 20150820
  Transmission Date: 20151125
  Serious: Yes (Other)
  Sender: FDA-Public Use
  Company Number: PHHY2012JP112278

PATIENT
  Sex: Male
  Weight: 3 kg

DRUGS (7)
  1. DOXORUBICIN [Suspect]
     Active Substance: DOXORUBICIN
     Indication: CHEMOTHERAPY
     Dosage: 50 MG/M2, UNK,(MATERNAL DOSE: 50 MG/M2)
     Route: 064
  2. DOXORUBICIN [Suspect]
     Active Substance: DOXORUBICIN
     Dosage: UNK
  3. CYCLOPHOSPHAMIDE. [Suspect]
     Active Substance: CYCLOPHOSPHAMIDE
     Indication: CHEMOTHERAPY
     Dosage: 750 MG/M2, UNK,MATERNAL DOSE: 750 MG/M2
     Route: 064
  4. DOXORUBICIN [Suspect]
     Active Substance: DOXORUBICIN
     Dosage: UNK
     Route: 064
  5. VINCRISTINE SULFATE. [Suspect]
     Active Substance: VINCRISTINE SULFATE
     Indication: CHEMOTHERAPY
     Dosage: 1.4 MG/M2, UNK,MATERNAL DOSE: 1.4 MG/M2
     Route: 064
  6. RITUXIMAB [Suspect]
     Active Substance: RITUXIMAB
     Indication: CHEMOTHERAPY
     Dosage: 375 MG/M2, UNK,MATERNAL DOSE: 375 MG/M2
     Route: 064
  7. PREDNISOLONE. [Suspect]
     Active Substance: PREDNISOLONE
     Indication: CHEMOTHERAPY
     Dosage: 60 MG/M2, UNK,MATERNAL DOSE: 60 MG/M2
     Route: 064

REACTIONS (2)
  - B-lymphocyte count decreased [Recovered/Resolved]
  - Foetal exposure during pregnancy [Recovered/Resolved]
